FAERS Safety Report 9459228 (Version 1)
Quarter: 2013Q3

REPORT INFORMATION
  Report Type: Report from Study
  Country: US (occurrence: US)
  Receive Date: 20130814
  Receipt Date: 20130814
  Transmission Date: 20140515
  Serious: Yes (Hospitalization, Other)
  Sender: FDA-Public Use
  Company Number: US-B.I. PHARMACEUTICALS,INC./RIDGEFIELD-2013-BI-24676GD

PATIENT
  Age: 75 Year
  Sex: Female

DRUGS (5)
  1. PRADAXA [Suspect]
     Route: 048
  2. MULTAQ [Suspect]
  3. COUMADIN [Suspect]
  4. SOTALOL HYDROCHLORIDE [Concomitant]
  5. AMIODARONE HYDROCHLORIDE [Concomitant]

REACTIONS (2)
  - Large intestinal haemorrhage [Unknown]
  - Drug interaction [Unknown]
